FAERS Safety Report 8176334-4 (Version None)
Quarter: 2012Q1

REPORT INFORMATION
  Report Type: 
  Country: None (occurrence: None)
  Receive Date: 20120301
  Receipt Date: 20120221
  Transmission Date: 20120608
  Serious: Yes (Other)
  Sender: FDA-Public Use
  Company Number: CA-JNJFOC-20120210713

PATIENT
  Sex: Female
  Weight: 68 kg

DRUGS (7)
  1. VITAMIN D [Concomitant]
     Route: 048
     Dates: start: 20100101
  2. FLUTICASONE FUROATE [Concomitant]
     Indication: SINUS CONGESTION
     Route: 065
     Dates: start: 20070101
  3. METHOTREXATE [Concomitant]
     Indication: RHEUMATOID ARTHRITIS
     Route: 048
     Dates: start: 19980101
  4. CALCIUM [Concomitant]
     Route: 048
     Dates: start: 20100101
  5. REMICADE [Suspect]
     Dosage: 66TH INFUSION
     Route: 042
     Dates: start: 20120221
  6. REMICADE [Suspect]
     Indication: RHEUMATOID ARTHRITIS
     Route: 042
     Dates: start: 20021112
  7. FOLIC ACID [Concomitant]
     Indication: VITAMIN SUPPLEMENTATION
     Route: 048
     Dates: start: 19980501

REACTIONS (3)
  - TRANSIENT ISCHAEMIC ATTACK [None]
  - PYREXIA [None]
  - CEREBELLAR INFARCTION [None]
